FAERS Safety Report 22332854 (Version 2)
Quarter: 2023Q2

REPORT INFORMATION
  Report Type: Spontaneous
  Country: US (occurrence: None)
  Receive Date: 20230517
  Receipt Date: 20230605
  Transmission Date: 20230721
  Serious: No
  Sender: FDA-Public Use
  Company Number: 2023A096231

PATIENT
  Age: 25969 Day
  Sex: Male
  Weight: 99.8 kg

DRUGS (2)
  1. BYDUREON BCISE [Suspect]
     Active Substance: EXENATIDE
     Route: 058
  2. BYDUREON [Suspect]
     Active Substance: EXENATIDE
     Route: 058

REACTIONS (9)
  - Haemorrhage [Unknown]
  - Skin swelling [Unknown]
  - Blood glucose increased [Unknown]
  - Overweight [Unknown]
  - Cardiac failure congestive [Unknown]
  - Weight decreased [Unknown]
  - Device delivery system issue [Unknown]
  - Device leakage [Unknown]
  - Injection site haemorrhage [Unknown]

NARRATIVE: CASE EVENT DATE: 20230421
